FAERS Safety Report 17705645 (Version 1)
Quarter: 2020Q2

REPORT INFORMATION
  Report Type: Report from Study
  Country: NL (occurrence: NL)
  Receive Date: 20200424
  Receipt Date: 20200424
  Transmission Date: 20200714
  Serious: Yes (Death, Other)
  Sender: FDA-Public Use
  Company Number: NL-ROCHE-2584561

PATIENT

DRUGS (6)
  1. LEUCOVORIN [FOLINIC ACID] [Suspect]
     Active Substance: LEUCOVORIN
     Indication: RECTAL CANCER
     Dosage: ON DAY 1 AND 2 (EXPERIMENTAL ARM)
     Route: 042
  2. OXALIPLATIN. [Suspect]
     Active Substance: OXALIPLATIN
     Indication: RECTAL CANCER
     Route: 042
  3. CAPECITABINE. [Suspect]
     Active Substance: CAPECITABINE
     Dosage: DAY 1 TO 33-38 (STANDARD ARM)
     Route: 065
  4. CAPECITABINE. [Suspect]
     Active Substance: CAPECITABINE
     Indication: RECTAL CANCER
     Dosage: FROM DAY 1-14 (EXPERIEMENTAL ARM)
     Route: 065
  5. 5-FLUOROURACIL [FLUOROURACIL] [Suspect]
     Active Substance: FLUOROURACIL
     Indication: RECTAL CANCER
     Dosage: LOADING DOSE
     Route: 040
  6. 5-FLUOROURACIL [FLUOROURACIL] [Suspect]
     Active Substance: FLUOROURACIL
     Dosage: ON DAY 1 AND DAY 2 EVERY 2 WEEKS
     Route: 042

REACTIONS (26)
  - Cardiac arrest [Fatal]
  - Mucosal inflammation [Unknown]
  - Obstruction [Unknown]
  - Cardiac disorder [Unknown]
  - Constipation [Unknown]
  - Blood disorder [Unknown]
  - Diarrhoea [Unknown]
  - Aspiration [Fatal]
  - Neurotoxicity [Unknown]
  - Angiopathy [Unknown]
  - Abdominal pain [Unknown]
  - Weight decreased [Unknown]
  - Infection [Unknown]
  - Neutropenic sepsis [Fatal]
  - Lethargy [Unknown]
  - Lymphatic disorder [Unknown]
  - Rectal haemorrhage [Unknown]
  - Palmar-plantar erythrodysaesthesia syndrome [Unknown]
  - Infestation [Unknown]
  - Nausea [Unknown]
  - Vomiting [Unknown]
  - Depression [Fatal]
  - Completed suicide [Fatal]
  - Febrile neutropenia [Unknown]
  - Fatigue [Unknown]
  - Proctitis [Unknown]
